FAERS Safety Report 22201604 (Version 1)
Quarter: 2023Q2

REPORT INFORMATION
  Report Type: Spontaneous
  Country: US (occurrence: US)
  Receive Date: 20230412
  Receipt Date: 20230412
  Transmission Date: 20230721
  Serious: No
  Sender: FDA-Public Use
  Company Number: US-BRISTOL-MYERS SQUIBB COMPANY-2023-051657

PATIENT
  Age: 53 Year
  Sex: Female
  Weight: 98.2 kg

DRUGS (1)
  1. LENALIDOMIDE [Suspect]
     Active Substance: LENALIDOMIDE
     Indication: Plasma cell myeloma
     Dosage: FREQ - D1-21 Q28 DAYS
     Route: 048
     Dates: start: 20220921

REACTIONS (1)
  - Monoclonal immunoglobulin increased [Not Recovered/Not Resolved]
